FAERS Safety Report 8226835-5 (Version None)
Quarter: 2012Q1

REPORT INFORMATION
  Report Type: 
  Country: None (occurrence: None)
  Receive Date: 20120322
  Receipt Date: 20120314
  Transmission Date: 20120608
  Serious: Yes (Other)
  Sender: FDA-Public Use
  Company Number: US-BAYER-2011-012756

PATIENT
  Age: 21 Year
  Sex: Female

DRUGS (12)
  1. DICLOFENAC POTASSIUM [Concomitant]
     Indication: PAIN
     Dosage: 50 MG, UNK
  2. NITROFUR-C [Concomitant]
     Dosage: 100 MG, BID
     Dates: start: 20090316
  3. DROSPIRENONE AND ETHINYL ESTRADIOL [Suspect]
     Indication: CONTRACEPTION
     Dosage: UNK
     Dates: start: 20090101, end: 20090301
  4. BENTYL [Concomitant]
     Dosage: 10 MG, UNK
     Route: 048
  5. LORTAB [Concomitant]
     Route: 048
  6. IMODIUM [Concomitant]
  7. FLAGYL [Concomitant]
     Dosage: 500 MG, TID
  8. PRILOSEC [Concomitant]
  9. ZOFRAN [Concomitant]
     Dosage: 8 MG, Q6WK
     Route: 048
  10. TYLENOL [Concomitant]
     Dosage: UNK
     Dates: start: 20090201
  11. KEFLEX [Concomitant]
     Dosage: 500 MG, QID
  12. CHERATUSSIN AC [Concomitant]
     Dosage: UNK

REACTIONS (6)
  - CHOLECYSTITIS CHRONIC [None]
  - GALLBLADDER INJURY [None]
  - INJURY [None]
  - PAIN [None]
  - THROMBOPHLEBITIS SUPERFICIAL [None]
  - DEEP VEIN THROMBOSIS [None]
